FAERS Safety Report 8969934 (Version 2)
Quarter: 2013Q2

REPORT INFORMATION
  Report Type: Spontaneous
  Country: AU (occurrence: AU)
  Receive Date: 20121217
  Receipt Date: 20130531
  Transmission Date: 20140414
  Serious: Yes (Hospitalization)
  Sender: FDA-Public Use
  Company Number: AU-B.I. PHARMACEUTICALS,INC./RIDGEFIELD-2012-AU-01978AU

PATIENT
  Age: 7 Decade
  Sex: Male

DRUGS (5)
  1. PRADAXA [Suspect]
     Indication: ATRIAL FIBRILLATION
     Dosage: 300 MG
  2. CADUET [Concomitant]
  3. SOMAC [Concomitant]
  4. TRITACE [Concomitant]
  5. SOTALOL [Concomitant]

REACTIONS (1)
  - Cerebral infarction [Not Recovered/Not Resolved]
